FAERS Safety Report 6377059-8 (Version None)
Quarter: 2009Q3

REPORT INFORMATION
  Report Type: 
  Country: None (occurrence: None)
  Receive Date: 20090925
  Receipt Date: 20090922
  Transmission Date: 20100115
  Serious: Yes (Death, Life-Threatening, Hospitalization)
  Sender: FDA-Public Use
  Company Number: DE-PFIZER INC-2009270757

PATIENT
  Age: 69 Year

DRUGS (10)
  1. PREDNISOLONE [Suspect]
     Indication: PROSTATE CANCER METASTATIC
     Dosage: 5 MG, 2X/DAY
     Route: 048
     Dates: start: 20090728
  2. BLINDED *NO SUBJECT DRUG [Suspect]
     Indication: PROSTATE CANCER METASTATIC
     Dosage: 37.5 MG, 1X/DAY
     Route: 048
     Dates: start: 20090728
  3. BLINDED *PLACEBO [Suspect]
     Indication: PROSTATE CANCER METASTATIC
     Dosage: 37.5 MG, 1X/DAY
     Route: 048
     Dates: start: 20090728
  4. BLINDED SUNITINIB MALATE [Suspect]
     Indication: PROSTATE CANCER METASTATIC
     Dosage: 37.5 MG, 1X/DAY
     Route: 048
     Dates: start: 20090728
  5. CELEBREX [Concomitant]
  6. ALISKIREN [Concomitant]
  7. ZOMETA [Concomitant]
  8. AMLODIPINE [Concomitant]
  9. OMEPRAZOLE [Concomitant]
  10. RAMIPRIL [Concomitant]

REACTIONS (2)
  - ANAEMIA [None]
  - PNEUMONIA [None]
